FAERS Safety Report 7065501-9 (Version None)
Quarter: 2010Q4

REPORT INFORMATION
  Report Type: 
  Country: None (occurrence: None)
  Receive Date: 20101027
  Receipt Date: 20101015
  Transmission Date: 20110411
  Serious: Yes (Other)
  Sender: FDA-Public Use
  Company Number: US-PFIZER INC-2010104921

PATIENT
  Sex: Female
  Weight: 89.796 kg

DRUGS (18)
  1. LYRICA [Suspect]
     Indication: FIBROMYALGIA
     Dosage: 75 MG, 1X/DAY
     Route: 048
     Dates: start: 20100301
  2. LYRICA [Suspect]
     Indication: ARTHRITIS
  3. SIMVASTATIN [Concomitant]
     Indication: BLOOD CHOLESTEROL ABNORMAL
     Dosage: UNK
  4. SIMVASTATIN [Concomitant]
     Route: 048
  5. METFORMIN [Concomitant]
     Indication: DIABETES MELLITUS
     Dosage: 500 MG, UNK
  6. LISINOPRIL [Concomitant]
     Indication: HYPERTENSION
     Dosage: 1/2 TABLET DAILY
  7. HYDROCHLOROTHIAZIDE [Concomitant]
     Route: 048
  8. HYDROCHLOROTHIAZIDE [Concomitant]
     Dosage: UNK
  9. OGEN [Concomitant]
     Dosage: 1/4 TABLET DAILY
  10. RANITIDINE [Concomitant]
     Dosage: 150 MG, 1X/DAY
     Route: 048
  11. ACETYLSALICYLIC ACID [Concomitant]
     Dosage: 81 MG, 1X/DAY
  12. LORAZEPAM [Concomitant]
     Dosage: ONCE DAILY AS NEEDED,
     Route: 048
  13. GLUCOSAMINE WITH MSM [Concomitant]
     Dosage: TWO TABLETS TWICE DAILY
     Route: 048
  14. MULTI-VITAMINS [Concomitant]
     Route: 048
  15. MAGNESIUM CITRATE [Concomitant]
     Dosage: FREQUENCY: AS DIRECTED,
  16. SODIUM PHOSPHATES [Concomitant]
     Dosage: FREQUENCY: AS DIRECTED,
  17. NEXIUM [Concomitant]
     Dosage: UNK
  18. MELOXICAM [Concomitant]
     Dosage: 15 MG 1/2 TABLET DAILY

REACTIONS (3)
  - CHAPPED LIPS [None]
  - GINGIVAL SWELLING [None]
  - LIP SWELLING [None]
